FAERS Safety Report 13016924 (Version 2)
Quarter: 2021Q2

REPORT INFORMATION
  Report Type: Report from Study
  Country: GT (occurrence: GT)
  Receive Date: 20161212
  Receipt Date: 20210602
  Transmission Date: 20210716
  Serious: Yes (Hospitalization)
  Sender: FDA-Public Use
  Company Number: PHHY2016GT167139

PATIENT
  Sex: Male

DRUGS (1)
  1. GLIVEC [Suspect]
     Active Substance: IMATINIB MESYLATE
     Indication: CHRONIC MYELOID LEUKAEMIA
     Dosage: 800 MG (2X400 MG)
     Route: 065

REACTIONS (7)
  - Gastric infection [Unknown]
  - Toothache [Unknown]
  - Malaise [Unknown]
  - Malnutrition [Unknown]
  - Diarrhoea haemorrhagic [Unknown]
  - General physical health deterioration [Unknown]
  - Weight decreased [Unknown]
